FAERS Safety Report 9731750 (Version 2)
Quarter: 2013Q4

REPORT INFORMATION
  Report Type: Spontaneous
  Country: DE (occurrence: DE)
  Receive Date: 20131205
  Receipt Date: 20131218
  Transmission Date: 20140711
  Serious: Yes (Other)
  Sender: FDA-Public Use
  Company Number: DE-ELI_LILLY_AND_COMPANY-DE201311009231

PATIENT
  Age: 69 Year
  Sex: Male

DRUGS (1)
  1. CIALIS [Suspect]
     Indication: PRODUCT USED FOR UNKNOWN INDICATION
     Dosage: 20 MG, PRN
     Route: 065
     Dates: start: 2008

REACTIONS (7)
  - Macular degeneration [Not Recovered/Not Resolved]
  - Optic nerve cupping [Unknown]
  - Astigmatism [Unknown]
  - Presbyopia [Unknown]
  - Cataract [Unknown]
  - Anxiety [Unknown]
  - Hypertension [Unknown]
